FAERS Safety Report 4275178-3 (Version None)
Quarter: 2004Q1

REPORT INFORMATION
  Report Type: 
  Country: None (occurrence: None)
  Receive Date: 20040116
  Receipt Date: 20040106
  Transmission Date: 20041129
  Serious: Yes (Hospitalization)
  Sender: FDA-Public Use
  Company Number: 2004GB00022

PATIENT
  Age: 50 Year
  Sex: Male
  Weight: 65 kg

DRUGS (3)
  1. SEROQUEL [Suspect]
     Indication: SCHIZOPHRENIA
     Dosage: 150 MG BID PO
     Route: 048
     Dates: start: 20031201, end: 20031214
  2. MIRTAZAPINE [Concomitant]
  3. OLANZAPINE [Concomitant]

REACTIONS (3)
  - AGGRESSION [None]
  - AGITATION [None]
  - SUICIDAL IDEATION [None]
